FAERS Safety Report 12378652 (Version 1)
Quarter: 2016Q2

REPORT INFORMATION
  Report Type: Spontaneous
  Country: US (occurrence: US)
  Receive Date: 20160517
  Receipt Date: 20160517
  Transmission Date: 20160815
  Serious: Yes (Hospitalization, Other)
  Sender: FDA-Public Use
  Company Number: US-ELI_LILLY_AND_COMPANY-US201605003544

PATIENT
  Age: 79 Year
  Sex: Female

DRUGS (7)
  1. HUMULIN N [Suspect]
     Active Substance: INSULIN HUMAN
     Dosage: 15 U, UNKNOWN
     Route: 065
     Dates: end: 201602
  2. HUMULIN 70/30 [Suspect]
     Active Substance: INSULIN HUMAN
     Indication: TYPE 1 DIABETES MELLITUS
     Dosage: UNK, UNKNOWN
     Route: 065
     Dates: start: 201511
  3. HUMALOG [Suspect]
     Active Substance: INSULIN LISPRO
     Indication: TYPE 1 DIABETES MELLITUS
     Dosage: 8 U, TID
     Route: 065
     Dates: start: 201602
  4. HUMULIN R [Suspect]
     Active Substance: INSULIN HUMAN
     Dosage: 8 U, UNKNOWN
     Route: 065
     Dates: end: 201602
  5. LEVEMIR [Concomitant]
     Active Substance: INSULIN DETEMIR
     Dosage: 25 U, QD
     Route: 065
  6. HUMULIN N [Suspect]
     Active Substance: INSULIN HUMAN
     Indication: TYPE 1 DIABETES MELLITUS
     Dosage: 15 U, UNKNOWN
     Route: 065
     Dates: start: 1975, end: 201511
  7. HUMULIN R [Suspect]
     Active Substance: INSULIN HUMAN
     Indication: TYPE 1 DIABETES MELLITUS
     Dosage: 8 U, UNKNOWN
     Route: 065
     Dates: start: 1975, end: 201511

REACTIONS (10)
  - Dehydration [Unknown]
  - Blood glucose increased [Unknown]
  - Blood glucose abnormal [Unknown]
  - Blood glucose increased [Unknown]
  - Drug dose omission [Unknown]
  - Dementia Alzheimer^s type [Unknown]
  - Urinary tract infection [Unknown]
  - Diabetic ketoacidosis [Unknown]
  - Platelet count increased [Unknown]
  - Weight increased [Unknown]

NARRATIVE: CASE EVENT DATE: 201510
